FAERS Safety Report 8258255-1 (Version None)
Quarter: 2012Q2

REPORT INFORMATION
  Report Type: 
  Country: None (occurrence: None)
  Receive Date: 20120404
  Receipt Date: 20120322
  Transmission Date: 20120825
  Serious: Yes (Other)
  Sender: FDA-Public Use
  Company Number: DE-UCBSA-053667

PATIENT
  Sex: Female

DRUGS (2)
  1. TOPIRAMATE [Concomitant]
  2. VIMPAT [Suspect]
     Dosage: UNKNOWN DOSE

REACTIONS (2)
  - PREGNANCY [None]
  - CONVULSION [None]
